FAERS Safety Report 17241308 (Version 1)
Quarter: 2020Q1

REPORT INFORMATION
  Report Type: Spontaneous
  Country: US (occurrence: US)
  Receive Date: 20200103
  Receipt Date: 20200103
  Transmission Date: 20200409
  Serious: Yes (Disabling)
  Sender: FDA-Public Use
  Company Number: None

PATIENT
  Age: 27 Year
  Sex: Female
  Weight: 57.6 kg

DRUGS (2)
  1. U~DREAM LITE [Suspect]
     Active Substance: HERBALS
  2. UDREAM FULL NIGHT [Suspect]
     Active Substance: HERBALS
     Indication: SLEEP DISORDER THERAPY
     Dosage: ?          QUANTITY:1 CAPSULE(S);?
     Route: 048
     Dates: start: 20191101, end: 20191217

REACTIONS (10)
  - Memory impairment [None]
  - Adulterated product [None]
  - Initial insomnia [None]
  - Mental impairment [None]
  - Sleep disorder [None]
  - Impaired work ability [None]
  - Fatigue [None]
  - Depression [None]
  - Impaired quality of life [None]
  - Therapy cessation [None]

NARRATIVE: CASE EVENT DATE: 20191129
